FAERS Safety Report 6622267-1 (Version None)
Quarter: 2010Q1

REPORT INFORMATION
  Report Type: 
  Country: None (occurrence: None)
  Receive Date: 20100305
  Receipt Date: 20100219
  Transmission Date: 20100710
  Serious: Yes (Other)
  Sender: FDA-Public Use
  Company Number: AMAG201000123

PATIENT
  Age: 42 Year
  Sex: Male
  Weight: 93 kg

DRUGS (22)
  1. FERAHEME [Suspect]
     Indication: IRON DEFICIENCY ANAEMIA
     Dosage: 250 MG, SINGLE, INTRAVENOUS
     Route: 042
     Dates: start: 20100218, end: 20100218
  2. FERAHEME [Suspect]
     Indication: RENAL FAILURE CHRONIC
     Dosage: 250 MG, SINGLE, INTRAVENOUS
     Route: 042
     Dates: start: 20100218, end: 20100218
  3. AMLODIPINE BESYLATE [Concomitant]
  4. BENAZEPRIL HYDROCHLORIDE (BENAZEPRIL HYDROCHLORIDE) [Concomitant]
  5. CALCIUM (CALCIUM GLUBIONATE) [Concomitant]
  6. CINNAMON (CINNAMOMUM VERUM) [Concomitant]
  7. CLONIDINE HCL (CLONIDINE HYDROCHLORIDE) [Concomitant]
  8. DIOVAN [Concomitant]
  9. ENGERIX-B [Concomitant]
  10. EPOGEN [Concomitant]
  11. FIBER [Concomitant]
  12. FUROSEMIDE (FUROSEMIDE SODIUM) [Concomitant]
  13. LANTUS [Concomitant]
  14. LEVOXYL [Concomitant]
  15. LIPITOR [Concomitant]
  16. NOVOLOG [Concomitant]
  17. LOVAZA [Concomitant]
  18. PHOSLO [Concomitant]
  19. PREDNISONE TAB [Concomitant]
  20. TEMAZEPAM [Concomitant]
  21. ZEMPLAR [Concomitant]
  22. ZETIA [Concomitant]

REACTIONS (5)
  - ANGIOEDEMA [None]
  - DRUG HYPERSENSITIVITY [None]
  - DYSARTHRIA [None]
  - PULMONARY CONGESTION [None]
  - VOMITING [None]
